FAERS Safety Report 6998544-1 (Version None)
Quarter: 2010Q3

REPORT INFORMATION
  Report Type: 
  Country: None (occurrence: None)
  Receive Date: 20100920
  Receipt Date: 20070612
  Transmission Date: 20110219
  Serious: Yes (Other)
  Sender: FDA-Public Use
  Company Number: US-ASTRAZENECA-2006UW24587

PATIENT
  Age: 14898 Day
  Sex: Male
  Weight: 131.1 kg

DRUGS (5)
  1. SEROQUEL [Suspect]
     Indication: DEPRESSION
     Dosage: STRENGTH - 200 MG, DOSE - 200 - 400 MG DAILY
     Route: 048
     Dates: start: 20050318
  2. SEROQUEL [Suspect]
     Indication: ANXIETY
     Dosage: STRENGTH - 200 MG, DOSE - 200 - 400 MG DAILY
     Route: 048
     Dates: start: 20050318
  3. SEROQUEL [Suspect]
     Route: 048
     Dates: end: 20051201
  4. SEROQUEL [Suspect]
     Route: 048
     Dates: end: 20051201
  5. CLOZARIL [Concomitant]
     Dates: start: 20040401

REACTIONS (5)
  - DIABETES MELLITUS [None]
  - DIABETIC COMA [None]
  - DIABETIC KETOACIDOSIS [None]
  - HYPERGLYCAEMIA [None]
  - TYPE 2 DIABETES MELLITUS [None]
